FAERS Safety Report 26101242 (Version 1)
Quarter: 2025Q4

REPORT INFORMATION
  Report Type: Report from Study
  Country: ZA (occurrence: ZA)
  Receive Date: 20251128
  Receipt Date: 20251128
  Transmission Date: 20260118
  Serious: Yes (Other)
  Sender: TEVA
  Company Number: ZA-TEVA-VS-3395333

PATIENT
  Age: 20 Year
  Sex: Female
  Weight: 50 kg

DRUGS (1)
  1. FINGOLIMOD HYDROCHLORIDE [Suspect]
     Active Substance: FINGOLIMOD HYDROCHLORIDE
     Indication: Multiple sclerosis
     Route: 048
     Dates: start: 20250409

REACTIONS (12)
  - Malaise [Not Recovered/Not Resolved]
  - Chapped lips [Unknown]
  - Swelling [Unknown]
  - Lip dry [Unknown]
  - Taste disorder [Unknown]
  - Product supply issue [Unknown]
  - Breast pain [Unknown]
  - Nausea [Unknown]
  - Viral infection [Not Recovered/Not Resolved]
  - Diarrhoea [Unknown]
  - Neck pain [Unknown]
  - Headache [Unknown]

NARRATIVE: CASE EVENT DATE: 20250101
